FAERS Safety Report 9527222 (Version 1)
Quarter: 2013Q3

REPORT INFORMATION
  Report Type: Report from Study
  Country: US (occurrence: US)
  Receive Date: 20130917
  Receipt Date: 20130917
  Transmission Date: 20140515
  Serious: Yes (Other)
  Sender: FDA-Public Use
  Company Number: US-ROCHE-1274694

PATIENT
  Sex: Female

DRUGS (1)
  1. AVASTIN [Suspect]
     Indication: RETINAL VEIN OCCLUSION
     Route: 065
     Dates: start: 20130731

REACTIONS (1)
  - Eye pruritus [Unknown]
